FAERS Safety Report 8182641-1 (Version None)
Quarter: 2012Q1

REPORT INFORMATION
  Report Type: 
  Country: None (occurrence: None)
  Receive Date: 20120305
  Receipt Date: 20120228
  Transmission Date: 20120608
  Serious: Yes (Hospitalization)
  Sender: FDA-Public Use
  Company Number: US-PFIZER INC-2012035798

PATIENT
  Sex: Female
  Weight: 59 kg

DRUGS (8)
  1. PROCARDIA XL [Concomitant]
     Indication: HYPERTENSION
     Dosage: UNK
     Dates: start: 19900101, end: 20111101
  2. XANAX [Concomitant]
     Dosage: UNK
  3. NIFEDIPINE [Suspect]
     Indication: HYPERTENSION
     Dosage: UNK
     Dates: start: 20111101, end: 20111201
  4. DIOVAN [Concomitant]
     Dosage: 160 MG, 1X/DAY
  5. NEXIUM [Concomitant]
     Dosage: 40 MG, UNK
  6. SYNTHROID [Concomitant]
     Indication: HYPOTHYROIDISM
     Dosage: 100 UG, 1X/DAY
  7. PREMARIN [Concomitant]
     Dosage: 0.3 MG, 1X/DAY
  8. PROPRANOLOL [Concomitant]
     Dosage: UNK

REACTIONS (5)
  - CHEST PAIN [None]
  - FEELING ABNORMAL [None]
  - NERVOUSNESS [None]
  - BLOOD PRESSURE INCREASED [None]
  - PALPITATIONS [None]
